FAERS Safety Report 7348866 (Version 3)
Quarter: 2018Q4

REPORT INFORMATION
  Report Type: Spontaneous
  Country: FR (occurrence: FR)
  Receive Date: 20100408
  Receipt Date: 20181022
  Transmission Date: 20190205
  Serious: Yes (Death, Other)
  Sender: FDA-Public Use
  Company Number: FR-PFIZER INC-2010043326

PATIENT
  Age: 43 Year
  Sex: Male

DRUGS (6)
  1. VERAPAMIL [Interacting]
     Active Substance: VERAPAMIL HYDROCHLORIDE
     Indication: CARDIOVASCULAR DISORDER
  2. YOHIMBINE [Concomitant]
     Active Substance: YOHIMBINE
  3. VIAGRA [Suspect]
     Active Substance: SILDENAFIL CITRATE
     Indication: ERECTILE DYSFUNCTION
     Dosage: 25 MG, UNK
  4. TRIMETAZIDINE [Concomitant]
     Active Substance: TRIMETAZIDINE
  5. BROMAZEPAM [Concomitant]
     Active Substance: BROMAZEPAM
  6. TRINITRINE [Concomitant]
     Active Substance: NITROGLYCERIN

REACTIONS (8)
  - Drug interaction [Fatal]
  - Pulmonary oedema [Unknown]
  - Aortic arteriosclerosis [Fatal]
  - Hypotension [Fatal]
  - Cardiomegaly [Fatal]
  - Arteriosclerosis coronary artery [Fatal]
  - Arrhythmia [Fatal]
  - Acute myocardial infarction [Unknown]
